FAERS Safety Report 25830609 (Version 1)
Quarter: 2025Q3

REPORT INFORMATION
  Report Type: Spontaneous
  Country: US (occurrence: None)
  Receive Date: 20250919
  Receipt Date: 20250919
  Transmission Date: 20251021
  Serious: Yes (Other)
  Sender: FDA-CTU
  Company Number: None

PATIENT
  Age: 66 Year
  Sex: Male
  Weight: 110.25 kg

DRUGS (13)
  1. REZDIFFRA [Suspect]
     Active Substance: RESMETIROM
     Indication: Metabolic dysfunction-associated liver disease
     Dosage: 1 TABLET(S) DAILY ORAL
     Route: 048
  2. MOUNJARO [Concomitant]
     Active Substance: TIRZEPATIDE
  3. ROSUVASTATIN [Concomitant]
     Active Substance: ROSUVASTATIN
  4. RISPERIDONE [Concomitant]
     Active Substance: RISPERIDONE
  5. SERTRALINE [Concomitant]
     Active Substance: SERTRALINE HYDROCHLORIDE
  6. BISOPROLOL [Concomitant]
     Active Substance: BISOPROLOL
  7. OMEPRAZOLE [Concomitant]
     Active Substance: OMEPRAZOLE
  8. MYRBETRIQ [Concomitant]
     Active Substance: MIRABEGRON
  9. DONEPEZIL [Concomitant]
     Active Substance: DONEPEZIL
  10. Ipratropium Bromide 0.06% Nasal spray [Concomitant]
  11. ADVIL [Concomitant]
     Active Substance: IBUPROFEN
  12. TYLENOL [Concomitant]
     Active Substance: ACETAMINOPHEN
  13. NAPROXEN [Concomitant]
     Active Substance: NAPROXEN

REACTIONS (3)
  - Faeces pale [None]
  - Urine bilirubin increased [None]
  - Pruritus [None]

NARRATIVE: CASE EVENT DATE: 20250910
